FAERS Safety Report 8895623 (Version 3)
Quarter: 2013Q1

REPORT INFORMATION
  Report Type: Spontaneous
  Country: JP (occurrence: JP)
  Receive Date: 20121108
  Receipt Date: 20130107
  Transmission Date: 20140127
  Serious: Yes (Hospitalization, Other)
  Sender: FDA-Public Use
  Company Number: JP-ROCHE-1152390

PATIENT
  Age: 68 Year
  Sex: Male
  Weight: 53 kg

DRUGS (9)
  1. MIRCERA [Suspect]
     Indication: NEPHROGENIC ANAEMIA
     Route: 042
     Dates: start: 20110907, end: 20110907
  2. KALIMATE [Concomitant]
     Indication: HYPERKALAEMIA
     Route: 048
     Dates: start: 200403
  3. FOSRENOL [Concomitant]
     Indication: BLOOD PHOSPHORUS INCREASED
     Route: 048
     Dates: start: 200403
  4. CINACALCET HYDROCHLORIDE [Concomitant]
     Indication: HYPERPARATHYROIDISM
     Dosage: DRUG REPORTED AS REGPARA
     Route: 048
     Dates: end: 20120813
  5. DEPAS [Concomitant]
     Indication: INSOMNIA
     Route: 048
     Dates: start: 200403
  6. BAYASPIRIN [Concomitant]
     Indication: CEREBRAL INFARCTION
     Route: 048
     Dates: start: 199811
  7. PLETAAL [Concomitant]
     Indication: PERIPHERAL ARTERIAL OCCLUSIVE DISEASE
     Route: 048
     Dates: start: 200003
  8. PENLES [Concomitant]
     Indication: DIALYSIS
     Route: 061
     Dates: start: 200401
  9. HEPARIN [Concomitant]
     Dosage: 3750 UNITS
     Route: 065

REACTIONS (2)
  - Pancytopenia [Recovered/Resolved]
  - Thrombocytopenia [Recovered/Resolved]
